FAERS Safety Report 7544323-6 (Version None)
Quarter: 2011Q2

REPORT INFORMATION
  Report Type: 
  Country: None (occurrence: None)
  Receive Date: 20110613
  Receipt Date: 20071107
  Transmission Date: 20111010
  Serious: Yes (Hospitalization)
  Sender: FDA-Public Use
  Company Number: PHHO2007MX18608

PATIENT
  Sex: Female

DRUGS (3)
  1. CAPTOPRIL [Concomitant]
     Dosage: UNK
  2. DIOVAN HCT [Suspect]
     Indication: HYPERTENSION
     Dosage: 160/12.5MG/1.5 TABLET DAILY
     Route: 048
     Dates: start: 20071026, end: 20071105
  3. DILTIAZEM [Concomitant]
     Dosage: UNK

REACTIONS (1)
  - CARDIAC FAILURE [None]
